FAERS Safety Report 7344118-2 (Version None)
Quarter: 2011Q1

REPORT INFORMATION
  Report Type: 
  Country: None (occurrence: None)
  Receive Date: 20110310
  Receipt Date: 20100622
  Transmission Date: 20110831
  Serious: No
  Sender: FDA-Public Use
  Company Number: A0866510A

PATIENT
  Age: 46 Year
  Sex: Female

DRUGS (2)
  1. WALGREENS NICOTINE TRANSDERMAL SYSTEM PATCH CLEAR, 21MG [Suspect]
     Dates: start: 20100528
  2. WALGREENS NICOTINE LOZENGE MINT 4MG [Suspect]
     Dates: start: 20100613, end: 20100613

REACTIONS (6)
  - DRUG ADMINISTRATION ERROR [None]
  - OROPHARYNGEAL PAIN [None]
  - OROPHARYNGEAL DISCOMFORT [None]
  - DRUG INEFFECTIVE [None]
  - ORAL DISCOMFORT [None]
  - NICOTINE DEPENDENCE [None]
